FAERS Safety Report 19924847 (Version 1)
Quarter: 2021Q4

REPORT INFORMATION
  Report Type: Spontaneous
  Country: FR (occurrence: FR)
  Receive Date: 20211006
  Receipt Date: 20211006
  Transmission Date: 20220303
  Serious: Yes (Hospitalization, Other)
  Sender: FDA-Public Use
  Company Number: None

PATIENT
  Age: 56 Year
  Sex: Female
  Weight: 54 kg

DRUGS (2)
  1. DIAZEPAM [Suspect]
     Active Substance: DIAZEPAM
     Indication: Intentional overdose
     Dosage: 38DOSAGEFORM
     Route: 048
     Dates: start: 20210621, end: 20210621
  2. TERALITHE [Suspect]
     Active Substance: LITHIUM CARBONATE
     Indication: Intentional overdose
     Dosage: 12GRAM
     Route: 048
     Dates: start: 20210621, end: 20210621

REACTIONS (6)
  - Bradycardia [Recovered/Resolved]
  - Poisoning deliberate [Recovered/Resolved]
  - Electrocardiogram QT prolonged [Recovered/Resolved]
  - Somnolence [Recovered/Resolved]
  - Vomiting [Recovered/Resolved]
  - Myoclonus [Recovered/Resolved]

NARRATIVE: CASE EVENT DATE: 20210621
